FAERS Safety Report 13102241 (Version 3)
Quarter: 2017Q1

REPORT INFORMATION
  Report Type: Spontaneous
  Country: US (occurrence: US)
  Receive Date: 20170110
  Receipt Date: 20170303
  Transmission Date: 20170428
  Serious: Yes (Hospitalization)
  Sender: FDA-Public Use
  Company Number: US-PFIZER INC-2017007317

PATIENT
  Age: 63 Year
  Sex: Female
  Weight: 79 kg

DRUGS (8)
  1. LYRICA [Suspect]
     Active Substance: PREGABALIN
     Indication: DIABETIC NEUROPATHY
     Dosage: 75 MG, 2X/DAY
     Route: 048
     Dates: start: 201612
  2. NEURONTIN [Suspect]
     Active Substance: GABAPENTIN
     Indication: DIABETIC NEUROPATHY
     Dosage: 600 MG, 3X/DAY
     Route: 048
     Dates: start: 201612
  3. LISINOPRIL. [Concomitant]
     Active Substance: LISINOPRIL
     Indication: BLOOD PRESSURE ABNORMAL
     Dosage: 5 MG, 1X/DAY
  4. LEXAPRO [Concomitant]
     Active Substance: ESCITALOPRAM OXALATE
     Indication: DEPRESSION
     Dosage: 20 MG, 2X/DAY
  5. LYRICA [Suspect]
     Active Substance: PREGABALIN
     Indication: NERVOUS SYSTEM DISORDER
  6. NEURONTIN [Suspect]
     Active Substance: GABAPENTIN
     Indication: TREMOR
  7. NEURONTIN [Suspect]
     Active Substance: GABAPENTIN
     Indication: PAIN
  8. NEURONTIN [Suspect]
     Active Substance: GABAPENTIN
     Indication: NERVOUS SYSTEM DISORDER

REACTIONS (2)
  - Upper limb fracture [Recovering/Resolving]
  - Fall [Unknown]

NARRATIVE: CASE EVENT DATE: 20161213
